FAERS Safety Report 8276894-9 (Version None)
Quarter: 2012Q2

REPORT INFORMATION
  Report Type: 
  Country: None (occurrence: None)
  Receive Date: 20120412
  Receipt Date: 20120402
  Transmission Date: 20120825
  Serious: Yes (Hospitalization)
  Sender: FDA-Public Use
  Company Number: US-ACTELION-A-NJ2010-40273

PATIENT

DRUGS (6)
  1. CALCIUM CHANNEL BLOCKERS [Concomitant]
  2. TRACLEER [Suspect]
     Indication: PULMONARY ARTERIAL HYPERTENSION
     Dosage: UNK
     Route: 048
  3. COUMADIN [Concomitant]
  4. TRACLEER [Suspect]
     Dosage: UNK
     Route: 048
     Dates: start: 20051122
  5. LASIX [Concomitant]
  6. REVATIO [Concomitant]

REACTIONS (13)
  - RENAL DISORDER [None]
  - CARDIAC VALVE DISEASE [None]
  - RENAL FAILURE ACUTE [None]
  - BLOOD CREATININE INCREASED [None]
  - TACHYCARDIA [None]
  - ANGINA PECTORIS [None]
  - RECTAL HAEMORRHAGE [None]
  - CORONARY ARTERY BYPASS [None]
  - HYPOAESTHESIA [None]
  - OEDEMA [None]
  - FLUID RETENTION [None]
  - CHEST PAIN [None]
  - DYSPNOEA [None]
